FAERS Safety Report 8271207-0 (Version None)
Quarter: 2012Q2

REPORT INFORMATION
  Report Type: 
  Country: None (occurrence: None)
  Receive Date: 20120410
  Receipt Date: 20120330
  Transmission Date: 20120825
  Serious: Yes (Hospitalization, Other)
  Sender: FDA-Public Use
  Company Number: US-SANOFI-AVENTIS-2012SA022662

PATIENT
  Age: 56 Year
  Sex: Male

DRUGS (1)
  1. PLAVIX [Suspect]

REACTIONS (2)
  - SMALL INTESTINAL OBSTRUCTION [None]
  - LIMB INJURY [None]
